FAERS Safety Report 8215090-8 (Version None)
Quarter: 2012Q1

REPORT INFORMATION
  Report Type: 
  Country: None (occurrence: None)
  Receive Date: 20120316
  Receipt Date: 20120313
  Transmission Date: 20120608
  Serious: Yes (Other)
  Sender: FDA-Public Use
  Company Number: GXKR2012DE001139

PATIENT
  Age: 69 Year
  Sex: Male

DRUGS (1)
  1. METHOTREXATE [Suspect]
     Indication: POLYARTHRITIS
     Dosage: 12.5 MG, QW
     Route: 058

REACTIONS (2)
  - MELKERSSON-ROSENTHAL SYNDROME [None]
  - LIP SWELLING [None]
